FAERS Safety Report 22089311 (Version 1)
Quarter: 2023Q1

REPORT INFORMATION
  Report Type: Spontaneous
  Country: US (occurrence: US)
  Receive Date: 20230313
  Receipt Date: 20230313
  Transmission Date: 20230418
  Serious: No
  Sender: FDA-Public Use
  Company Number: US-PERRIGO-23US000463

PATIENT
  Sex: Male
  Weight: 102.04 kg

DRUGS (3)
  1. NICOTINE POLACRILEX [Suspect]
     Active Substance: NICOTINE
     Indication: Smoking cessation therapy
     Dosage: 2 MG, 10 TO 20 TIMES DAILY
     Route: 002
     Dates: start: 2018, end: 20230104
  2. NICOTINE POLACRILEX [Suspect]
     Active Substance: NICOTINE
     Indication: Accidental exposure to product packaging
     Dosage: 2 MG, 10 TO 20 TIMES DAILY
     Route: 002
     Dates: start: 20230105
  3. NICOTINE POLACRILEX [Suspect]
     Active Substance: NICOTINE
     Dosage: DESICCANT PIECES, SINGLE
     Route: 048
     Dates: start: 20230114, end: 20230114

REACTIONS (3)
  - Diarrhoea [Recovered/Resolved]
  - Drug ineffective [Unknown]
  - Accidental exposure to product packaging [Recovered/Resolved]

NARRATIVE: CASE EVENT DATE: 20180101
